FAERS Safety Report 6577183-0 (Version None)
Quarter: 2010Q1

REPORT INFORMATION
  Report Type: 
  Country: None (occurrence: None)
  Receive Date: 20100210
  Receipt Date: 20100201
  Transmission Date: 20100710
  Serious: Yes (Hospitalization)
  Sender: FDA-Public Use
  Company Number: PHHY2010RO05214

PATIENT
  Sex: Male

DRUGS (1)
  1. GLEEVEC [Suspect]
     Indication: MYELOID LEUKAEMIA
     Dosage: 400 MG/DAY

REACTIONS (1)
  - ATRIOVENTRICULAR BLOCK COMPLETE [None]
